FAERS Safety Report 8390639-3 (Version None)
Quarter: 2012Q2

REPORT INFORMATION
  Report Type: 
  Country: None (occurrence: None)
  Receive Date: 20120529
  Receipt Date: 20120517
  Transmission Date: 20120825
  Serious: Yes (Death, Life-Threatening, Hospitalization)
  Sender: FDA-Public Use
  Company Number: JP-BRISTOL-MYERS SQUIBB COMPANY-16490872

PATIENT
  Age: 95 Year
  Sex: Female
  Weight: 34 kg

DRUGS (1)
  1. SPRYCEL [Suspect]
     Indication: CHRONIC MYELOID LEUKAEMIA
     Route: 048
     Dates: start: 20120312, end: 20120318

REACTIONS (6)
  - BLOOD UREA ABNORMAL [None]
  - BLOOD POTASSIUM ABNORMAL [None]
  - BLOOD CREATININE ABNORMAL [None]
  - CARDIAC FAILURE [None]
  - ATRIOVENTRICULAR BLOCK COMPLETE [None]
  - BLOOD URIC ACID ABNORMAL [None]
